FAERS Safety Report 7579659-6 (Version None)
Quarter: 2011Q2

REPORT INFORMATION
  Report Type: 
  Country: None (occurrence: None)
  Receive Date: 20110629
  Receipt Date: 20110607
  Transmission Date: 20111010
  Serious: Yes (Hospitalization, Other)
  Sender: FDA-Public Use
  Company Number: US-BAYER-2011-021650

PATIENT
  Age: 18 Year
  Sex: Female
  Weight: 102 kg

DRUGS (4)
  1. YAZ [Suspect]
     Indication: CONTRACEPTION
  2. YAZ [Suspect]
     Indication: ACNE
     Dosage: UNK
     Dates: start: 20080201, end: 20080701
  3. NORVASC [Concomitant]
     Indication: HYPERTENSION
  4. MULTI-VITAMIN [Concomitant]

REACTIONS (6)
  - OBESITY [None]
  - GALLBLADDER DISORDER [None]
  - CHOLELITHIASIS [None]
  - CHOLESTEROSIS [None]
  - MULTIPLE INJURIES [None]
  - PANCREATITIS [None]
